FAERS Safety Report 4917151-5 (Version None)
Quarter: 2006Q1

REPORT INFORMATION
  Report Type: 
  Country: None (occurrence: None)
  Receive Date: 20060216
  Receipt Date: 20060216
  Transmission Date: 20060701
  Serious: Yes (Other)
  Sender: FDA-Public Use
  Company Number: None

PATIENT
  Age: 24 Year
  Sex: Female

DRUGS (1)
  1. OMNIPAQUE 300 [Suspect]
     Dosage: 50 ML  IV
     Route: 042
     Dates: start: 20051109

REACTIONS (4)
  - BRONCHIAL HYPERACTIVITY [None]
  - CHEST DISCOMFORT [None]
  - CONDITION AGGRAVATED [None]
  - PROCEDURAL COMPLICATION [None]
